FAERS Safety Report 16118359 (Version 1)
Quarter: 2019Q1

REPORT INFORMATION
  Report Type: Spontaneous
  Country: FR (occurrence: FR)
  Receive Date: 20190326
  Receipt Date: 20190326
  Transmission Date: 20190418
  Serious: Yes (Other)
  Sender: FDA-Public Use
  Company Number: FR-MYLANLABS-2019M1025850

PATIENT
  Age: 31 Year
  Sex: Female

DRUGS (8)
  1. CETIRIZINE [Suspect]
     Active Substance: CETIRIZINE HYDROCHLORIDE
     Indication: PRODUCT USED FOR UNKNOWN INDICATION
     Dosage: 50 MILLIGRAM, TOTAL
     Route: 048
     Dates: start: 20170319, end: 20170319
  2. MAG 2                              /00454301/ [Suspect]
     Active Substance: MAGNESIUM CARBONATE
     Indication: PRODUCT USED FOR UNKNOWN INDICATION
     Dosage: 7 DOSAGE FORM, TOTAL
     Route: 048
     Dates: start: 20170319, end: 20170319
  3. DOLIPRANE [Suspect]
     Active Substance: ACETAMINOPHEN
     Indication: PRODUCT USED FOR UNKNOWN INDICATION
     Dosage: 3 GRAM, TOTAL
     Route: 048
     Dates: start: 20170319, end: 20170319
  4. ZOPICLONE [Suspect]
     Active Substance: ZOPICLONE
     Indication: PRODUCT USED FOR UNKNOWN INDICATION
     Dosage: 30 MILLIGRAM, TOTAL
     Route: 048
     Dates: start: 20170319, end: 20170319
  5. ESCITALOPRAM [Suspect]
     Active Substance: ESCITALOPRAM OXALATE
     Indication: PRODUCT USED FOR UNKNOWN INDICATION
     Dosage: 140 MILLIGRAM, TOTAL
     Route: 048
     Dates: start: 20170319, end: 20170319
  6. NAPROXENE                          /00256201/ [Concomitant]
     Active Substance: NAPROXEN
     Dosage: UNK
  7. XANAX [Suspect]
     Active Substance: ALPRAZOLAM
     Indication: PRODUCT USED FOR UNKNOWN INDICATION
     Dosage: 49 DOSAGE FORM, TOTAL
     Route: 048
     Dates: start: 20170319, end: 20170319
  8. FLAGYL [Suspect]
     Active Substance: METRONIDAZOLE\METRONIDAZOLE HYDROCHLORIDE
     Indication: PRODUCT USED FOR UNKNOWN INDICATION
     Dosage: 9 DOSAGE FORM, TOTAL
     Route: 048
     Dates: start: 20170319, end: 20170319

REACTIONS (7)
  - Suicide attempt [Unknown]
  - Toxicity to various agents [Recovered/Resolved]
  - Hypotension [Recovered/Resolved]
  - Bradyphrenia [Recovered/Resolved]
  - Hypoglycaemia [Recovered/Resolved]
  - Somnolence [Recovered/Resolved]
  - Disturbance in attention [Recovered/Resolved]

NARRATIVE: CASE EVENT DATE: 20170319
